FAERS Safety Report 7617318 (Version 2)
Quarter: 2013Q4

REPORT INFORMATION
  Report Type: Report from Study
  Country: DE (occurrence: DE)
  Receive Date: 20101005
  Receipt Date: 20131218
  Transmission Date: 20140711
  Serious: No
  Sender: FDA-Public Use
  Company Number: DE-ROCHE-730319

PATIENT
  Age: 51 Year
  Sex: Female
  Weight: 59 kg

DRUGS (8)
  1. BEVACIZUMAB [Suspect]
     Indication: BREAST CANCER METASTATIC
     Route: 042
     Dates: start: 20100421, end: 20100421
  2. BEVACIZUMAB [Suspect]
     Route: 042
     Dates: start: 20100915, end: 20100915
  3. DOCETAXEL [Concomitant]
     Indication: BREAST CANCER
     Route: 042
     Dates: start: 20100421
  4. DOCETAXEL [Concomitant]
     Route: 042
     Dates: start: 20100512
  5. DOCETAXEL [Concomitant]
     Route: 042
     Dates: start: 20100602
  6. DOCETAXEL [Concomitant]
     Route: 042
     Dates: start: 20100623
  7. DOCETAXEL [Concomitant]
     Route: 042
     Dates: start: 20100714
  8. DOCETAXEL [Concomitant]
     Route: 042
     Dates: start: 20100814

REACTIONS (1)
  - Hypercalcaemia [Unknown]
